FAERS Safety Report 23667853 (Version 1)
Quarter: 2024Q1

REPORT INFORMATION
  Report Type: Spontaneous
  Country: TR (occurrence: TR)
  Receive Date: 20240325
  Receipt Date: 20240325
  Transmission Date: 20240409
  Serious: Yes (Death)
  Sender: FDA-Public Use
  Company Number: TR-STRIDES ARCOLAB LIMITED-2024SP003403

PATIENT
  Age: 39 Year
  Sex: Male

DRUGS (5)
  1. ETOPOSIDE [Suspect]
     Active Substance: ETOPOSIDE
     Indication: Germ cell neoplasm
     Dosage: 800 MILLIGRAM/SQ. METER (PART OF BEAM REGIMEN)
     Route: 065
  2. CARMUSTINE [Suspect]
     Active Substance: CARMUSTINE
     Indication: Germ cell neoplasm
     Dosage: 300 MILLIGRAM/SQ. METER (ON DAY 7. PART OF BEAM REGIMEN)
     Route: 065
  3. CYTARABINE [Suspect]
     Active Substance: CYTARABINE
     Indication: Germ cell neoplasm
     Dosage: 800 MILLIGRAM/SQ. METER (PART OF BEAM REGIMEN)
     Route: 065
  4. MELPHALAN [Suspect]
     Active Substance: MELPHALAN
     Indication: Germ cell neoplasm
     Dosage: UNK (PART OF BEAM REGIMEN)
     Route: 065
  5. CYCLOPHOSPHAMIDE [Suspect]
     Active Substance: CYCLOPHOSPHAMIDE
     Indication: Germ cell neoplasm
     Dosage: 35 MILLIGRAM/KILOGRAM (ON DAYS 3-6.)
     Route: 065

REACTIONS (2)
  - Haemorrhage intracranial [Fatal]
  - Thrombocytopenia [Fatal]
